FAERS Safety Report 24233914 (Version 1)
Quarter: 2024Q3

REPORT INFORMATION
  Report Type: Report from Study
  Country: IN (occurrence: IN)
  Receive Date: 20240821
  Receipt Date: 20240821
  Transmission Date: 20241017
  Serious: Yes (Hospitalization)
  Sender: INCYTE
  Company Number: IN-002147023-NVSC2024IN167158

PATIENT

DRUGS (2)
  1. RUXOLITINIB [Suspect]
     Active Substance: RUXOLITINIB
     Indication: Graft versus host disease
     Dosage: 5 MG, BID
     Route: 048
  2. RUXOLITINIB [Suspect]
     Active Substance: RUXOLITINIB
     Dosage: 10 MG, BID (INCREASED DOSE)
     Route: 048
     Dates: start: 20240601

REACTIONS (3)
  - Diarrhoea [Unknown]
  - Graft versus host disease [Unknown]
  - Rhinitis [Unknown]
